FAERS Safety Report 14347000 (Version 2)
Quarter: 2018Q1

REPORT INFORMATION
  Report Type: Report from Study
  Country: US (occurrence: US)
  Receive Date: 20180103
  Receipt Date: 20180214
  Transmission Date: 20180509
  Serious: No
  Sender: FDA-Public Use
  Company Number: US-SHIRE-US201731533

PATIENT
  Sex: Female

DRUGS (1)
  1. GATTEX [Suspect]
     Active Substance: TEDUGLUTIDE\WATER
     Indication: SHORT-BOWEL SYNDROME
     Dosage: UNK
     Dates: start: 20170621, end: 20171030

REACTIONS (1)
  - Drug ineffective [Unknown]
